FAERS Safety Report 5232482-X (Version None)
Quarter: 2007Q1

REPORT INFORMATION
  Report Type: 
  Country: None (occurrence: None)
  Receive Date: 20061204
  Receipt Date: 20060424
  Transmission Date: 20070707
  Serious: No
  Sender: FDA-Public Use
  Company Number: 06H-163-0307782-00

PATIENT
  Sex: Female
  Weight: 61.2356 kg

DRUGS (4)
  1. MARCAINE [Suspect]
     Indication: ARTHRALGIA
     Dates: start: 20060215
  2. CELESTONE SOLUSPAN [Suspect]
     Indication: PIRIFORMIS SYNDROME
     Dosage: 4 MILLIGRAM/MILLILITERS, NOT REPORTED, INTRAMUSCULAR
     Route: 030
     Dates: start: 20060215, end: 20060215
  3. VALIUM [Concomitant]
  4. HYDROCHLOROTHIAZIDE [Concomitant]

REACTIONS (15)
  - ASTHENIA [None]
  - BLOOD GLUCOSE INCREASED [None]
  - BLOOD PRESSURE INCREASED [None]
  - CONDITION AGGRAVATED [None]
  - CONVULSION [None]
  - DECREASED ACTIVITY [None]
  - DIZZINESS [None]
  - HEADACHE [None]
  - MUSCULOSKELETAL STIFFNESS [None]
  - NERVOUSNESS [None]
  - PAIN [None]
  - SENSORY DISTURBANCE [None]
  - SOMNOLENCE [None]
  - THROAT IRRITATION [None]
  - TREMOR [None]
